FAERS Safety Report 5914524-9 (Version None)
Quarter: 2008Q4

REPORT INFORMATION
  Report Type: 
  Country: None (occurrence: None)
  Receive Date: 20081008
  Receipt Date: 20081001
  Transmission Date: 20090506
  Serious: Yes (Other)
  Sender: FDA-Public Use
  Company Number: 2008SP020284

PATIENT
  Age: 56 Year
  Sex: Female

DRUGS (4)
  1. DESLORATADINE [Suspect]
     Indication: HYPERSENSITIVITY
     Dosage: 5 MG;QD;PO
     Route: 048
     Dates: start: 20081001
  2. LEXOTAN [Concomitant]
  3. COZAAR [Concomitant]
  4. NEXIUM [Concomitant]

REACTIONS (2)
  - BLOOD PRESSURE INCREASED [None]
  - DIZZINESS [None]
